FAERS Safety Report 5493376-8 (Version None)
Quarter: 2007Q4

REPORT INFORMATION
  Report Type: 
  Country: None (occurrence: None)
  Receive Date: 20071023
  Receipt Date: 20070917
  Transmission Date: 20080405
  Serious: Yes (Hospitalization)
  Sender: FDA-Public Use
  Company Number: US-ROCHE-511204

PATIENT
  Age: 65 Year
  Sex: Female
  Weight: 107.2 kg

DRUGS (12)
  1. CAPECITABINE [Suspect]
     Dosage: GIVEN ON DAYS 1-14 OF 3 WEEK CYCLE
     Route: 048
     Dates: start: 20070725
  2. BLINDED BEVACIZUMAB [Suspect]
     Route: 042
     Dates: start: 20070725
  3. ELAVIL [Concomitant]
     Indication: DRUG USE FOR UNKNOWN INDICATION
     Dosage: 50 MG, QHS
  4. ATIVAN [Concomitant]
     Indication: DRUG USE FOR UNKNOWN INDICATION
     Dosage: AT BEDTIME
     Route: 048
  5. KYTRIL [Concomitant]
     Indication: NAUSEA
     Route: 048
  6. COMPAZINE [Concomitant]
     Indication: DRUG USE FOR UNKNOWN INDICATION
     Dosage: GIVEN 4-6 HOURS PRN
  7. OXYCODONE HCL [Concomitant]
     Indication: DRUG USE FOR UNKNOWN INDICATION
     Dosage: 20 MG BID, REPORTED AS 'OXYCODONE ER'
  8. LEVOTHYROXINE SODIUM [Concomitant]
     Indication: DRUG USE FOR UNKNOWN INDICATION
  9. COZAAR [Concomitant]
     Indication: DRUG USE FOR UNKNOWN INDICATION
  10. METOPROLOL [Concomitant]
     Indication: DRUG USE FOR UNKNOWN INDICATION
  11. GEMFIBROZIL [Concomitant]
     Indication: DRUG USE FOR UNKNOWN INDICATION
  12. LOVASTATIN [Concomitant]
     Indication: DRUG USE FOR UNKNOWN INDICATION

REACTIONS (1)
  - MENTAL STATUS CHANGES [None]
